FAERS Safety Report 7201431-7 (Version None)
Quarter: 2010Q4

REPORT INFORMATION
  Report Type: 
  Country: None (occurrence: None)
  Receive Date: 20101227
  Receipt Date: 20101227
  Transmission Date: 20110411
  Serious: Yes (Other)
  Sender: FDA-Public Use
  Company Number: None

PATIENT
  Age: 56 Year
  Sex: Female
  Weight: 72.5755 kg

DRUGS (1)
  1. VALACYCLOVIR HYDROCHLORIDE [Suspect]

REACTIONS (3)
  - DRUG INEFFECTIVE [None]
  - HERPES VIRUS INFECTION [None]
  - PRODUCT SUBSTITUTION ISSUE [None]
